FAERS Safety Report 23537076 (Version 2)
Quarter: 2024Q1

REPORT INFORMATION
  Report Type: Spontaneous
  Country: DE (occurrence: DE)
  Receive Date: 20240219
  Receipt Date: 20240325
  Transmission Date: 20240410
  Serious: Yes (Other)
  Sender: FDA-Public Use
  Company Number: DE-DSJP-DSE-2024-106455

PATIENT
  Age: 74 Year
  Sex: Male
  Weight: 120 kg

DRUGS (8)
  1. BEMPEDOIC ACID\EZETIMIBE [Suspect]
     Active Substance: BEMPEDOIC ACID\EZETIMIBE
     Indication: Hyperlipidaemia
     Dosage: 1 DF(180/10MG), QD
     Route: 065
     Dates: start: 20231206
  2. FALITHROM [Suspect]
     Active Substance: PHENPROCOUMON
     Indication: Cardiac valve prosthesis user
     Dosage: UNK (TABLETS BY VALUE)
     Route: 065
     Dates: start: 20050726
  3. FALITHROM [Suspect]
     Active Substance: PHENPROCOUMON
     Dosage: UNK
     Route: 065
     Dates: start: 20240208
  4. ENTRESTO [Concomitant]
     Active Substance: SACUBITRIL\VALSARTAN
     Indication: Cardiac failure
     Dosage: UNK UNK, BID (1-0-1) (49/51)
     Route: 065
     Dates: start: 20180605
  5. METOPROLOL SUCCINATE [Concomitant]
     Active Substance: METOPROLOL SUCCINATE
     Indication: Arrhythmia
     Dosage: UNK UNK, BID (1-0-1) (47.5)
     Route: 065
     Dates: start: 20230329
  6. JARDIANCE [Concomitant]
     Active Substance: EMPAGLIFLOZIN
     Indication: Cardiac failure
     Dosage: UNK UNK, QD (1-0-0) (10)
     Route: 065
     Dates: start: 20210108
  7. METFORMIN [Concomitant]
     Active Substance: METFORMIN HYDROCHLORIDE
     Indication: Type 2 diabetes mellitus
     Dosage: UNK (0.5-0-1) (1000)
     Route: 065
     Dates: start: 20161010
  8. TORSEMIDE [Concomitant]
     Active Substance: TORSEMIDE
     Indication: Cardiac failure
     Dosage: UNK UNK, QD (1-0-0) (10)
     Route: 065
     Dates: start: 20161010

REACTIONS (1)
  - International normalised ratio increased [Recovering/Resolving]

NARRATIVE: CASE EVENT DATE: 20240117
